FAERS Safety Report 4602761-5 (Version None)
Quarter: 2005Q1

REPORT INFORMATION
  Report Type: 
  Country: None (occurrence: None)
  Receive Date: 20050309
  Receipt Date: 20050228
  Transmission Date: 20050727
  Serious: Yes (Hospitalization)
  Sender: FDA-Public Use
  Company Number: US-MERCK-0502USA03651

PATIENT
  Age: 65 Year
  Sex: Male

DRUGS (5)
  1. VIOXX [Suspect]
     Indication: ARTHRITIS
     Route: 048
  2. LISTERINE ANTISEPTIC [Concomitant]
     Indication: DENTAL DISORDER PROPHYLAXIS
     Route: 065
  3. VERAPAMIL [Suspect]
     Route: 065
  4. ATENOLOL [Suspect]
     Route: 065
  5. [THERAPY UNSPECIFIED] [Suspect]
     Route: 065

REACTIONS (5)
  - CARDIAC DISORDER [None]
  - CEREBROVASCULAR ACCIDENT [None]
  - HEART RATE DECREASED [None]
  - HYPOTENSION [None]
  - MYOCARDIAL INFARCTION [None]
